FAERS Safety Report 8434949-X (Version None)
Quarter: 2012Q2

REPORT INFORMATION
  Report Type: 
  Country: None (occurrence: None)
  Receive Date: 20120614
  Receipt Date: 20120607
  Transmission Date: 20120825
  Serious: No
  Sender: FDA-Public Use
  Company Number: US-PFIZER INC-2012138436

PATIENT
  Sex: Female

DRUGS (3)
  1. PRISTIQ [Suspect]
     Dosage: UNK
  2. NORVASC [Suspect]
     Dosage: UNK
  3. XANAX [Suspect]
     Dosage: UNK

REACTIONS (5)
  - SOCIAL AVOIDANT BEHAVIOUR [None]
  - ANGER [None]
  - THYROID DISORDER [None]
  - FEELING ABNORMAL [None]
  - CARDIAC DISORDER [None]
